FAERS Safety Report 18911426 (Version 1)
Quarter: 2021Q1

REPORT INFORMATION
  Report Type: Spontaneous
  Country: US (occurrence: US)
  Receive Date: 20210218
  Receipt Date: 20210218
  Transmission Date: 20210420
  Serious: Yes (Other)
  Sender: FDA-Public Use
  Company Number: NVSC2021US031448

PATIENT
  Sex: Female

DRUGS (1)
  1. PROMACTA [Suspect]
     Active Substance: ELTROMBOPAG OLAMINE
     Indication: IMMUNE THROMBOCYTOPENIA
     Dosage: UNK (1 DF (12.5 MG, QD), MONDAY?FRIDAY AND 2 DF (25 MG, QD), SATURDAY?SUNDAY)
     Route: 048
     Dates: start: 20201010

REACTIONS (1)
  - Hallucination, auditory [Unknown]
